FAERS Safety Report 6606641-5 (Version None)
Quarter: 2010Q1

REPORT INFORMATION
  Report Type: 
  Country: None (occurrence: None)
  Receive Date: 20100226
  Receipt Date: 20100216
  Transmission Date: 20100710
  Serious: Yes (Hospitalization)
  Sender: FDA-Public Use
  Company Number: FR-PFIZER INC-2008099256

PATIENT
  Age: 69 Year
  Sex: Female
  Weight: 69 kg

DRUGS (5)
  1. SUNITINIB MALATE [Suspect]
     Indication: BREAST CANCER
     Dosage: 37.5 MG, 1X/DAY
     Route: 048
     Dates: start: 20081011, end: 20081119
  2. SUNITINIB MALATE [Suspect]
     Dosage: 25 MG, 1X/DAY
     Dates: start: 20081219, end: 20090911
  3. CAPECITABINE [Suspect]
     Indication: BREAST CANCER
     Dosage: 1250 MG, 2X/DAY, DAY1 AND 14, EVERY THREE WEEKS
     Route: 048
     Dates: start: 20081011, end: 20081119
  4. CAPECITABINE [Suspect]
     Dosage: 2000 MG, 1X/DAY
     Dates: start: 20081219, end: 20090904
  5. SINTROM [Concomitant]
     Indication: THROMBOSIS PROPHYLAXIS
     Dosage: UNK
     Dates: start: 20080601, end: 20081119

REACTIONS (1)
  - GENERAL PHYSICAL HEALTH DETERIORATION [None]
